FAERS Safety Report 9764515 (Version 4)
Quarter: 2014Q1

REPORT INFORMATION
  Report Type: Spontaneous
  Country: JP (occurrence: JP)
  Receive Date: 20131217
  Receipt Date: 20140102
  Transmission Date: 20141002
  Serious: Yes (Hospitalization)
  Sender: FDA-Public Use
  Company Number: JP-BAXTER-2013BAX049555

PATIENT
  Sex: Male

DRUGS (3)
  1. DIANEAL-N PD-2 1.5 PD SOLUTION [Suspect]
     Indication: RENAL FAILURE CHRONIC
     Route: 033
  2. DIANEAL-N PD-2 1.5 PD SOLUTION [Suspect]
     Indication: PERITONEAL DIALYSIS
  3. DIANEAL-N PD-2 1.5 PD SOLUTION [Suspect]
     Indication: PERITONEAL DIALYSIS

REACTIONS (1)
  - Pleurisy [Unknown]
